FAERS Safety Report 15888482 (Version 1)
Quarter: 2019Q1

REPORT INFORMATION
  Report Type: Spontaneous
  Country: US (occurrence: US)
  Receive Date: 20190129
  Receipt Date: 20190129
  Transmission Date: 20190417
  Serious: Yes (Hospitalization)
  Sender: FDA-Public Use
  Company Number: None

PATIENT
  Age: 44 Year
  Sex: Female
  Weight: 113.4 kg

DRUGS (1)
  1. LENVATINIB [Suspect]
     Active Substance: LENVATINIB

REACTIONS (1)
  - Acute myocardial infarction [None]
